FAERS Safety Report 12661121 (Version 2)
Quarter: 2016Q3

REPORT INFORMATION
  Report Type: Spontaneous
  Country: US (occurrence: US)
  Receive Date: 20160817
  Receipt Date: 20160901
  Transmission Date: 20161109
  Serious: No
  Sender: FDA-Public Use
  Company Number: US-RELYPSA-RLY2016000610

PATIENT
  Age: 66 Year
  Sex: Female

DRUGS (1)
  1. VELTASSA [Suspect]
     Active Substance: PATIROMER
     Indication: PRODUCT USED FOR UNKNOWN INDICATION
     Dosage: 8.4 G, Q.D.
     Route: 048
     Dates: start: 20160427, end: 20160427

REACTIONS (7)
  - Feeling abnormal [Recovering/Resolving]
  - Nausea [Recovering/Resolving]
  - Abdominal pain upper [Recovering/Resolving]
  - Vomiting [Recovered/Resolved]
  - Back pain [Recovering/Resolving]
  - Decreased appetite [Recovering/Resolving]
  - Diarrhoea [Recovering/Resolving]

NARRATIVE: CASE EVENT DATE: 20160427
